FAERS Safety Report 5256704-4 (Version None)
Quarter: 2007Q1

REPORT INFORMATION
  Report Type: 
  Country: None (occurrence: None)
  Receive Date: 20070306
  Receipt Date: 20070220
  Transmission Date: 20070707
  Serious: Yes (Other)
  Sender: FDA-Public Use
  Company Number: US-ELI_LILLY_AND_COMPANY-US200702004733

PATIENT
  Age: 63 Year
  Sex: Male

DRUGS (5)
  1. ALIMTA [Suspect]
     Indication: LUNG CANCER METASTATIC
     Dosage: 1000 MG, OTHER
     Route: 042
     Dates: start: 20070216, end: 20070216
  2. ALIMTA [Suspect]
     Dosage: 1000 MG, OTHER
     Route: 042
     Dates: start: 20070216
  3. DECADRON /CAN/ [Concomitant]
     Indication: PROPHYLAXIS
     Dosage: UNK, OTHER
     Dates: start: 20070215, end: 20070215
  4. DECADRON /CAN/ [Concomitant]
     Dosage: 8 MG, OTHER
  5. PALONOSETRON HYDROCHLORIDE [Concomitant]
     Indication: NAUSEA
     Dosage: 0.25 MG, UNK

REACTIONS (10)
  - BLOOD PRESSURE DECREASED [None]
  - CONVULSION [None]
  - DIZZINESS [None]
  - DYSPEPSIA [None]
  - ERYTHEMA [None]
  - NAUSEA [None]
  - OXYGEN SATURATION DECREASED [None]
  - PRURITUS [None]
  - UNRESPONSIVE TO STIMULI [None]
  - WHEEZING [None]
